FAERS Safety Report 6268765-4 (Version None)
Quarter: 2009Q3

REPORT INFORMATION
  Report Type: 
  Country: None (occurrence: None)
  Receive Date: 20090713
  Receipt Date: 20090713
  Transmission Date: 20100115
  Serious: Yes (Hospitalization)
  Sender: FDA-Public Use
  Company Number: None

PATIENT
  Age: 80 Year
  Sex: Male
  Weight: 83 kg

DRUGS (2)
  1. SULFAMETHOXAZOLE AND TRIMETHOPRIM [Suspect]
     Indication: INFECTION
     Dosage: 1 TAB BID PO
     Route: 048
     Dates: start: 20090627, end: 20090709
  2. ATENOLOL [Suspect]
     Indication: HYPERTENSION
     Dosage: 12.5 MG EVERY DAY PO
     Route: 048
     Dates: start: 20051103, end: 20090709

REACTIONS (3)
  - BRADYCARDIA [None]
  - HYPERKALAEMIA [None]
  - RENAL FAILURE ACUTE [None]
